FAERS Safety Report 19489463 (Version 2)
Quarter: 2021Q3

REPORT INFORMATION
  Report Type: Spontaneous
  Country: RU (occurrence: RU)
  Receive Date: 20210703
  Receipt Date: 20210731
  Transmission Date: 20211014
  Serious: Yes (Hospitalization)
  Sender: FDA-Public Use
  Company Number: RU-JNJFOC-20210702962

PATIENT
  Sex: Female

DRUGS (3)
  1. ILOPROST. [Suspect]
     Active Substance: ILOPROST
     Indication: PULMONARY ARTERIAL HYPERTENSION
     Dosage: 4 DF, QD
     Route: 055
     Dates: start: 201509
  2. METHYLPREDNISOLONE. [Concomitant]
     Active Substance: METHYLPREDNISOLONE
     Dosage: 4 MG, QD
  3. ADEMPAS [Concomitant]
     Active Substance: RIOCIGUAT
     Route: 048

REACTIONS (9)
  - Dizziness [Recovering/Resolving]
  - Hypotension [Recovering/Resolving]
  - Loss of consciousness [Recovering/Resolving]
  - Drug ineffective [Unknown]
  - Presyncope [Recovering/Resolving]
  - Contraindicated product administered [Unknown]
  - Pain in extremity [Recovering/Resolving]
  - Tachycardia [Recovering/Resolving]
  - Product prescribing issue [Unknown]

NARRATIVE: CASE EVENT DATE: 201707
